FAERS Safety Report 8303374-4 (Version None)
Quarter: 2012Q2

REPORT INFORMATION
  Report Type: 
  Country: None (occurrence: None)
  Receive Date: 20120423
  Receipt Date: 20120412
  Transmission Date: 20120825
  Serious: No
  Sender: FDA-Public Use
  Company Number: US-BIOGENIDEC-2012BI012765

PATIENT
  Age: 26 Year
  Sex: Female

DRUGS (2)
  1. AVONEX [Suspect]
     Indication: MULTIPLE SCLEROSIS
     Route: 030
     Dates: start: 20120406
  2. ATIVAN [Concomitant]
     Indication: ANXIETY DISORDER

REACTIONS (3)
  - CRYING [None]
  - APHASIA [None]
  - INFLUENZA LIKE ILLNESS [None]
